FAERS Safety Report 5023743-8 (Version None)
Quarter: 2006Q2

REPORT INFORMATION
  Report Type: 
  Country: None (occurrence: None)
  Receive Date: 20060606
  Receipt Date: 20060523
  Transmission Date: 20061013
  Serious: Yes (Death, Other)
  Sender: FDA-Public Use
  Company Number: 225421

PATIENT
  Age: 53 Year
  Sex: Female

DRUGS (1)
  1. MABTHERA (RITUXIMAB) CONC FOR SOLUTION FOR INFUSION [Suspect]
     Indication: DIFFUSE LARGE B-CELL LYMPHOMA
     Dosage: 375 MG/M2, 1/WEEK

REACTIONS (9)
  - BACK PAIN [None]
  - BREAST MASS [None]
  - CAUDA EQUINA SYNDROME [None]
  - HAEMATOTOXICITY [None]
  - HEPATITIS C [None]
  - MARROW HYPERPLASIA [None]
  - NEUTROPENIA [None]
  - PARAPARESIS [None]
  - THROMBOCYTOPENIA [None]
